FAERS Safety Report 12403754 (Version 2)
Quarter: 2016Q3

REPORT INFORMATION
  Report Type: Spontaneous
  Country: IL (occurrence: IL)
  Receive Date: 20160525
  Receipt Date: 20160715
  Transmission Date: 20161109
  Serious: Yes (Life-Threatening, Hospitalization)
  Sender: FDA-Public Use
  Company Number: IL-CELGENEUS-ISR-2016054701

PATIENT
  Age: 83 Year
  Sex: Female
  Weight: 45 kg

DRUGS (2)
  1. AZACITIDINE. [Suspect]
     Active Substance: AZACITIDINE
     Indication: MYELODYSPLASTIC SYNDROME
     Dosage: TOTAL DOSE 700MG FOR 7 DAYS
     Route: 041
     Dates: start: 20151028
  2. HEXAKAPRON [Suspect]
     Active Substance: TRANEXAMIC ACID
     Indication: HAEMORRHAGE PROPHYLAXIS
     Route: 048
     Dates: start: 20151028, end: 20151119

REACTIONS (4)
  - Chest X-ray abnormal [None]
  - Hyponatraemia [Recovering/Resolving]
  - Blood osmolarity decreased [Recovered/Resolved]
  - Hyperventilation [None]

NARRATIVE: CASE EVENT DATE: 20151119
